FAERS Safety Report 8899574 (Version 1)
Quarter: 2012Q4

REPORT INFORMATION
  Report Type: 
  Country: SE (occurrence: SE)
  Receive Date: 20121109
  Receipt Date: 20121109
  Transmission Date: 20130627
  Serious: Yes (Hospitalization)
  Sender: FDA-Public Use
  Company Number: SE-PFIZER INC-2012277775

PATIENT
  Age: 70 Year
  Sex: Female
  Weight: 102.2 kg

DRUGS (8)
  1. GENOTROPIN [Suspect]
     Dosage: 0.3 mg, 1x/day,7 injections/week
     Route: 058
     Dates: start: 20031001
  2. ATACAND [Concomitant]
     Indication: ESSENTIAL HYPERTENSION
     Dosage: UNK
     Dates: start: 19990624
  3. ACTIVELLE [Concomitant]
     Indication: LUTEINISING HORMONE DEFICIENCY
     Dosage: UNK
     Dates: start: 20000701
  4. ACTIVELLE [Concomitant]
     Indication: FOLLICLE-STIMULATING HORMONE DEFICIENCY
  5. ACTIVELLE [Concomitant]
     Indication: OVARIAN DISORDER
  6. ACTIVELLE [Concomitant]
     Indication: HYPOGONADISM
  7. LASIX RETARD [Concomitant]
     Indication: HYPERTENSION
     Dosage: UNK
     Dates: start: 20040401
  8. ZANIDIP [Concomitant]
     Indication: HYPERTENSION
     Dosage: UNK
     Dates: start: 20040401

REACTIONS (1)
  - Arthropathy [Unknown]
